FAERS Safety Report 11862128 (Version 3)
Quarter: 2016Q1

REPORT INFORMATION
  Report Type: Spontaneous
  Country: DE (occurrence: DE)
  Receive Date: 20151222
  Receipt Date: 20160229
  Transmission Date: 20160526
  Serious: Yes (Other)
  Sender: FDA-Public Use
  Company Number: DE-BIOGEN-2015BI124531

PATIENT
  Age: 45 Year
  Sex: Male

DRUGS (4)
  1. TYSABRI [Suspect]
     Active Substance: NATALIZUMAB
     Indication: MULTIPLE SCLEROSIS
     Route: 042
     Dates: start: 20131007
  2. CANESTEN [Concomitant]
     Active Substance: CLOTRIMAZOLE
     Indication: HYPERTENSION
  3. TYSABRI [Suspect]
     Active Substance: NATALIZUMAB
     Route: 042
     Dates: start: 20150701
  4. CANESTEN [Concomitant]
     Active Substance: CLOTRIMAZOLE
     Indication: HYPERTENSION
     Route: 065

REACTIONS (6)
  - Gamma-glutamyltransferase increased [Unknown]
  - Alanine aminotransferase increased [Unknown]
  - Fatigue [Not Recovered/Not Resolved]
  - Hepatitis A antibody positive [Unknown]
  - Transaminases increased [Unknown]
  - Aspartate aminotransferase increased [Unknown]

NARRATIVE: CASE EVENT DATE: 20140612
